FAERS Safety Report 14109145 (Version 2)
Quarter: 2018Q4

REPORT INFORMATION
  Report Type: Spontaneous
  Country: US (occurrence: US)
  Receive Date: 20171019
  Receipt Date: 20181213
  Transmission Date: 20190204
  Serious: Yes (Hospitalization)
  Sender: FDA-Public Use
  Company Number: US-OTSUKA-2017_020368

PATIENT
  Age: 49 Year
  Sex: Female

DRUGS (3)
  1. ZOLOFT [Concomitant]
     Active Substance: SERTRALINE HYDROCHLORIDE
     Indication: PRODUCT USED FOR UNKNOWN INDICATION
     Dosage: UNK
     Route: 065
  2. REXULTI [Suspect]
     Active Substance: BREXPIPRAZOLE
     Dosage: UNK
     Route: 065
     Dates: start: 2017, end: 2017
  3. REXULTI [Suspect]
     Active Substance: BREXPIPRAZOLE
     Indication: BIPOLAR DISORDER
     Dosage: 3 MG, QD(ONCE DAILY)
     Route: 048
     Dates: end: 201705

REACTIONS (19)
  - Hallucination [Unknown]
  - Helplessness [Unknown]
  - Drug abuse [Unknown]
  - Adverse reaction [Unknown]
  - Product use in unapproved indication [Unknown]
  - Aggression [Unknown]
  - Fear [Unknown]
  - Impaired quality of life [Unknown]
  - Feeling abnormal [Unknown]
  - Legal problem [Unknown]
  - Social avoidant behaviour [Unknown]
  - Insomnia [Unknown]
  - Hallucinations, mixed [Unknown]
  - Amnesia [Unknown]
  - Decreased appetite [Unknown]
  - Loss of consciousness [Unknown]
  - Abnormal behaviour [Unknown]
  - Nervousness [Unknown]
  - Memory impairment [Unknown]
